FAERS Safety Report 8593690 (Version 6)
Quarter: 2016Q1

REPORT INFORMATION
  Report Type: Report from Study
  Country: DE (occurrence: DE)
  Receive Date: 20120604
  Receipt Date: 20160121
  Transmission Date: 20160526
  Serious: Yes (Hospitalization)
  Sender: FDA-Public Use
  Company Number: DE-JNJFOC-20120520439

PATIENT
  Age: 11 Year
  Sex: Female
  Weight: 33.3 kg

DRUGS (3)
  1. AZATHIOPRINE. [Concomitant]
     Active Substance: AZATHIOPRINE
  2. REMICADE [Suspect]
     Active Substance: INFLIXIMAB
     Indication: CROHN^S DISEASE
     Route: 042
     Dates: start: 20120308
  3. 5-ASA [Concomitant]
     Active Substance: MESALAMINE
     Route: 048

REACTIONS (1)
  - Somatic symptom disorder [Recovered/Resolved]

NARRATIVE: CASE EVENT DATE: 20120427
